FAERS Safety Report 6700793-4 (Version None)
Quarter: 2010Q2

REPORT INFORMATION
  Report Type: 
  Country: None (occurrence: None)
  Receive Date: 20100428
  Receipt Date: 20100422
  Transmission Date: 20101027
  Serious: Yes (Other)
  Sender: FDA-Public Use
  Company Number: JP-ELI_LILLY_AND_COMPANY-JP201004007048

PATIENT
  Sex: Male
  Weight: 63 kg

DRUGS (3)
  1. HUMATROPE [Suspect]
     Dosage: 0.2 MG, DAILY (1/D)
     Route: 058
     Dates: start: 20061110
  2. THYRADIN [Concomitant]
     Indication: HYPOTHYROIDISM
     Dosage: 50 MG, DAILY (1/D)
     Route: 048
     Dates: start: 20080523, end: 20090715
  3. CORTRIL [Concomitant]
     Indication: ADRENAL INSUFFICIENCY
     Dosage: 15 MG, DAILY (1/D)
     Route: 048
     Dates: start: 20080425, end: 20090914

REACTIONS (1)
  - PITUITARY TUMOUR BENIGN [None]
